FAERS Safety Report 25545548 (Version 1)
Quarter: 2025Q3

REPORT INFORMATION
  Report Type: Spontaneous
  Country: US (occurrence: US)
  Receive Date: 20250711
  Receipt Date: 20250711
  Transmission Date: 20251021
  Serious: Yes (Hospitalization, Disabling, Other)
  Sender: BRECKENRIDGE PHARMACEUTICAL, INC.
  Company Number: US-Breckenridge Pharmaceutical, Inc.-2180374

PATIENT
  Age: 19 Year
  Sex: Female

DRUGS (1)
  1. OXCARBAZEPINE [Suspect]
     Active Substance: OXCARBAZEPINE

REACTIONS (5)
  - Muscular weakness [Unknown]
  - Seizure [Recovered/Resolved]
  - Respiration abnormal [Recovered/Resolved]
  - Blood sodium decreased [Unknown]
  - Nausea [Unknown]
